FAERS Safety Report 24235214 (Version 1)
Quarter: 2024Q3

REPORT INFORMATION
  Report Type: Report from Study
  Country: US (occurrence: None)
  Receive Date: 20240821
  Receipt Date: 20240821
  Transmission Date: 20241017
  Serious: Yes (Other)
  Sender: ASTRAZENECA
  Company Number: 2024A184617

PATIENT
  Sex: Female

DRUGS (4)
  1. FASENRA [Suspect]
     Active Substance: BENRALIZUMAB
     Indication: Asthma
     Dosage: 30MG/ML EVERY EIGHT WEEKS
     Route: 058
  2. SYMBICORT [Suspect]
     Active Substance: BUDESONIDE\FORMOTEROL FUMARATE DIHYDRATE
     Dosage: 160-4.5 MCG;UNKNOWN UNKNOWN
     Route: 055
  3. OXYCODONE [Concomitant]
     Active Substance: OXYCODONE
  4. PREDNISONE [Concomitant]
     Active Substance: PREDNISONE

REACTIONS (10)
  - Pulmonary fibrosis [Not Recovered/Not Resolved]
  - Lung cyst [Not Recovered/Not Resolved]
  - Pneumonia [Not Recovered/Not Resolved]
  - Drug ineffective [Not Recovered/Not Resolved]
  - Asthma [Not Recovered/Not Resolved]
  - Middle insomnia [Not Recovered/Not Resolved]
  - Panic attack [Not Recovered/Not Resolved]
  - Myalgia [Not Recovered/Not Resolved]
  - Choking sensation [Not Recovered/Not Resolved]
  - Intentional product misuse [Unknown]
